FAERS Safety Report 5124480-1 (Version None)
Quarter: 2006Q4

REPORT INFORMATION
  Report Type: 
  Country: None (occurrence: None)
  Receive Date: 20061006
  Receipt Date: 20060929
  Transmission Date: 20070319
  Serious: Yes (Death, Other)
  Sender: FDA-Public Use
  Company Number: B0440952A

PATIENT
  Age: 37 Year
  Sex: Female
  Weight: 54.8852 kg

DRUGS (4)
  1. RETROVIR [Suspect]
     Indication: HIV INFECTION
     Dosage: 500 MG/ORAL
     Route: 048
     Dates: start: 20050301
  2. DIDANOSINE [Suspect]
     Indication: HIV INFECTION
     Dosage: 400 MG/ORAL
     Route: 048
     Dates: start: 20050301
  3. RITONAVIR (RITONAVIR) [Suspect]
     Indication: HIV INFECTION
     Dosage: 100 MG/ORAL
     Route: 048
     Dates: start: 20050301
  4. ATAZANAVIR (ATAZANAVIR) [Suspect]
     Indication: HIV INFECTION
     Dosage: 300 MG/ORAL
     Route: 048
     Dates: start: 20050301

REACTIONS (4)
  - DRUG EXPOSURE DURING PREGNANCY [None]
  - INTRA-UTERINE DEATH [None]
  - PLACENTAL INSUFFICIENCY [None]
  - STILLBIRTH [None]
